FAERS Safety Report 9746342 (Version 1)
Quarter: 2013Q4

REPORT INFORMATION
  Report Type: Spontaneous
  Country: AR (occurrence: None)
  Receive Date: 20131205
  Receipt Date: 20131205
  Transmission Date: 20140711
  Serious: Yes (Hospitalization)
  Sender: FDA-Public Use
  Company Number: VAL_02846_2013

PATIENT
  Sex: Female

DRUGS (2)
  1. LOPRESSOR [Suspect]
     Indication: BLOOD PRESSURE ABNORMAL
  2. GALVUS MET [Suspect]
     Indication: DIABETES MELLITUS
     Dosage: 2 DF, 2 DF (1000/50MG), DAILY ORAL
     Route: 048

REACTIONS (3)
  - Cerebrovascular accident [None]
  - Depression [None]
  - Blood glucose increased [None]
